FAERS Safety Report 14162764 (Version 1)
Quarter: 2017Q4

REPORT INFORMATION
  Report Type: Report from Study
  Country: US (occurrence: US)
  Receive Date: 20171106
  Receipt Date: 20171106
  Transmission Date: 20180321
  Serious: No
  Sender: FDA-Public Use
  Company Number: PHEH2017US035800

PATIENT
  Sex: Male

DRUGS (1)
  1. COSENTYX [Suspect]
     Active Substance: SECUKINUMAB
     Indication: PSORIATIC ARTHROPATHY
     Dosage: 150 MG, QMO(PRE FILLED SYRINGE)
     Route: 058

REACTIONS (5)
  - Muscle atrophy [Unknown]
  - Arthralgia [Unknown]
  - Malaise [Unknown]
  - Neck pain [Unknown]
  - Musculoskeletal pain [Unknown]
